FAERS Safety Report 9794340 (Version 1)
Quarter: 2014Q1

REPORT INFORMATION
  Report Type: Spontaneous
  Country: US (occurrence: US)
  Receive Date: 20140102
  Receipt Date: 20140102
  Transmission Date: 20141002
  Serious: Yes (Other)
  Sender: FDA-Public Use
  Company Number: US-TEVA-453957USA

PATIENT
  Age: 21 Year
  Sex: Female
  Weight: 61.29 kg

DRUGS (2)
  1. PARAGARD 380A [Suspect]
     Indication: CONTRACEPTION
     Route: 015
  2. TOPAMAX [Concomitant]
     Indication: MIGRAINE

REACTIONS (5)
  - Gallbladder operation [Unknown]
  - Device expulsion [Recovered/Resolved]
  - Medical device complication [Unknown]
  - Abdominal pain upper [Recovered/Resolved]
  - Vaginal haemorrhage [Unknown]
